FAERS Safety Report 15270907 (Version 3)
Quarter: 2019Q1

REPORT INFORMATION
  Report Type: Spontaneous
  Country: US (occurrence: US)
  Receive Date: 20180813
  Receipt Date: 20190206
  Transmission Date: 20190417
  Serious: No
  Sender: FDA-Public Use
  Company Number: US-ASTRAZENECA-2018SE91654

PATIENT
  Sex: Female
  Weight: 75.8 kg

DRUGS (1)
  1. BYDUREON BCISE [Suspect]
     Active Substance: EXENATIDE
     Indication: TYPE 2 DIABETES MELLITUS
     Route: 058
     Dates: start: 20180709

REACTIONS (5)
  - Injury associated with device [Unknown]
  - Product dose omission [Unknown]
  - Oropharyngeal pain [Unknown]
  - Device leakage [Unknown]
  - Wrong technique in device usage process [Unknown]
